FAERS Safety Report 18436392 (Version 2)
Quarter: 2020Q4

REPORT INFORMATION
  Report Type: Report from Study
  Country: CA (occurrence: CA)
  Receive Date: 20201028
  Receipt Date: 20201217
  Transmission Date: 20210114
  Serious: Yes (Other)
  Sender: FDA-Public Use
  Company Number: CA-JNJFOC-20201030915

PATIENT
  Age: 53 Year
  Sex: Female
  Weight: 57.8 kg

DRUGS (3)
  1. STELARA [Suspect]
     Active Substance: USTEKINUMAB
     Indication: COLITIS ULCERATIVE
     Route: 042
     Dates: start: 20201017
  2. PREDNISONE. [Concomitant]
     Active Substance: PREDNISONE
     Indication: PRODUCT USED FOR UNKNOWN INDICATION
     Route: 065
     Dates: start: 202010, end: 20201211
  3. STELARA [Suspect]
     Active Substance: USTEKINUMAB
     Dosage: ON 11-DEC-2020, THE PATIENT HAD 2ND INJECTION
     Route: 058
     Dates: start: 20201211

REACTIONS (2)
  - Colitis ulcerative [Not Recovered/Not Resolved]
  - Headache [Recovered/Resolved]

NARRATIVE: CASE EVENT DATE: 20201017
